FAERS Safety Report 5253850-6 (Version None)
Quarter: 2007Q1

REPORT INFORMATION
  Report Type: 
  Country: None (occurrence: None)
  Receive Date: 20070227
  Receipt Date: 20070213
  Transmission Date: 20070707
  Serious: Yes (Hospitalization)
  Sender: FDA-Public Use
  Company Number: 236588

PATIENT
  Sex: Male

DRUGS (1)
  1. AVASTIN [Suspect]
     Indication: COLON CANCER
     Dosage: 1%

REACTIONS (3)
  - GASTROINTESTINAL DISORDER [None]
  - PERICARDIAL EFFUSION [None]
  - PULMONARY THROMBOSIS [None]
